FAERS Safety Report 5306111-0 (Version None)
Quarter: 2007Q2

REPORT INFORMATION
  Report Type: 
  Country: None (occurrence: None)
  Receive Date: 20070424
  Receipt Date: 20070130
  Transmission Date: 20071010
  Serious: No
  Sender: FDA-Public Use
  Company Number: US-BRISTOL-MYERS SQUIBB COMPANY-13661962

PATIENT
  Age: 5 Decade
  Sex: Female

DRUGS (3)
  1. PARAPLATIN [Suspect]
     Route: 042
  2. BENADRYL [Concomitant]
     Indication: PREMEDICATION
  3. DEXAMETHASONE 0.5MG TAB [Concomitant]
     Indication: PREMEDICATION

REACTIONS (2)
  - ORAL DISCOMFORT [None]
  - SWOLLEN TONGUE [None]
